FAERS Safety Report 8552345-1 (Version None)
Quarter: 2012Q3

REPORT INFORMATION
  Report Type: 
  Country: None (occurrence: None)
  Receive Date: 20120731
  Receipt Date: 20120723
  Transmission Date: 20120928
  Serious: Yes (Hospitalization)
  Sender: FDA-Public Use
  Company Number: US-BAYER-2012-016095

PATIENT
  Age: 39 Year
  Sex: Female
  Weight: 68 kg

DRUGS (5)
  1. YAZ [Suspect]
     Dosage: UNK
     Dates: start: 20060101, end: 20071001
  2. PHENAZOPYRIDINE HCL TAB [Concomitant]
     Dosage: 20 MG, UNK
     Dates: start: 20080208
  3. PERCOCET [Concomitant]
  4. PHENTERMINE [Concomitant]
  5. AMOXICILLIN AND CLAVULANATE POTASSIUM [Concomitant]
     Dosage: 125 MG, UNK
     Dates: start: 20080208

REACTIONS (4)
  - MENTAL DISORDER [None]
  - PAIN [None]
  - CHOLELITHIASIS [None]
  - GALLBLADDER DISORDER [None]
